FAERS Safety Report 24783343 (Version 1)
Quarter: 2024Q4

REPORT INFORMATION
  Report Type: Spontaneous
  Country: FR (occurrence: FR)
  Receive Date: 20241227
  Receipt Date: 20241227
  Transmission Date: 20250115
  Serious: Yes (Other)
  Sender: TEVA
  Company Number: None

PATIENT
  Age: 35 Year
  Sex: Female

DRUGS (2)
  1. ALPRAZOLAM [Suspect]
     Active Substance: ALPRAZOLAM
     Indication: Anxiety
     Route: 048
     Dates: start: 20241115, end: 20241115
  2. OXAZEPAM [Suspect]
     Active Substance: OXAZEPAM
     Indication: Incorrect dose administered
     Route: 048
     Dates: start: 20241115, end: 20241115

REACTIONS (3)
  - Depressed level of consciousness [Recovering/Resolving]
  - Incorrect dose administered [Recovered/Resolved]
  - Somnolence [Recovering/Resolving]

NARRATIVE: CASE EVENT DATE: 20241116
